FAERS Safety Report 16150447 (Version 1)
Quarter: 2019Q2

REPORT INFORMATION
  Report Type: Spontaneous
  Country: US (occurrence: US)
  Receive Date: 20190402
  Receipt Date: 20190402
  Transmission Date: 20190711
  Serious: No
  Sender: FDA-Public Use
  Company Number: None

PATIENT
  Age: 72 Year
  Sex: Male
  Weight: 89.55 kg

DRUGS (2)
  1. FIRDAPSE [Suspect]
     Active Substance: AMIFAMPRIDINE
     Indication: MYASTHENIC SYNDROME
     Dosage: ?          QUANTITY:2 TABLET(S);?
     Route: 048
     Dates: start: 20190202, end: 20190204
  2. MESTINON [Concomitant]
     Active Substance: PYRIDOSTIGMINE BROMIDE

REACTIONS (11)
  - Tremor [None]
  - Dysphagia [None]
  - Epistaxis [None]
  - Asthenia [None]
  - Eye swelling [None]
  - Loss of personal independence in daily activities [None]
  - Rash generalised [None]
  - Muscular weakness [None]
  - Urticaria [None]
  - Eye pruritus [None]
  - Decreased appetite [None]

NARRATIVE: CASE EVENT DATE: 20190202
